FAERS Safety Report 19140892 (Version 4)
Quarter: 2021Q2

REPORT INFORMATION
  Report Type: Spontaneous
  Country: GB (occurrence: GB)
  Receive Date: 20210415
  Receipt Date: 20210608
  Transmission Date: 20210717
  Serious: Yes (Life-Threatening, Hospitalization, Other)
  Sender: FDA-Public Use
  Company Number: NVSC2021GB080001

PATIENT
  Age: 48 Year
  Sex: Female
  Weight: 51.4 kg

DRUGS (20)
  1. CARBOPLATIN. [Suspect]
     Active Substance: CARBOPLATIN
     Dosage: UNK (4TH CYCLE)
     Route: 065
     Dates: start: 20210215
  2. CARBOPLATIN. [Suspect]
     Active Substance: CARBOPLATIN
     Dosage: 450 MG (4TH CYCLE; CARBOPLATIN 450 MG + 5% GLUCOSE 500 ML + + 5% GLUCOSE 545 M GIVEN OVER 1 HOUR )
     Route: 042
     Dates: start: 20210219, end: 20210219
  3. METOCLOPRAMIDE. [Suspect]
     Active Substance: METOCLOPRAMIDE
     Indication: NAUSEA
     Dosage: 10 MG, TID, UPTO 3 TIMES A DAY, AS REQUIRED
     Route: 048
     Dates: start: 20201113
  4. METOCLOPRAMIDE. [Suspect]
     Active Substance: METOCLOPRAMIDE
     Indication: VOMITING
     Dosage: UNK
     Route: 065
  5. DOXIL [Suspect]
     Active Substance: DOXORUBICIN HYDROCHLORIDE
     Indication: OVARIAN CANCER
     Dosage: FIRST 3 CYCLES; CAELYX + 5% GLUCOSE
     Route: 065
  6. CARBOPLATIN. [Suspect]
     Active Substance: CARBOPLATIN
     Indication: OVARIAN CANCER
     Dosage: FIRST 3 CYCLES; CARBOPLATIN + 5% GLUCOSE
     Route: 065
  7. ONDANSETRON [Suspect]
     Active Substance: ONDANSETRON
     Indication: VOMITING
     Dosage: UNK UNK, QD
     Route: 065
  8. GLUCOSE [Suspect]
     Active Substance: DEXTROSE
     Dosage: FIRST 3 CYCLES; CAELYX + 5% GLUCOSE
     Route: 065
  9. CAELYX [Suspect]
     Active Substance: DOXORUBICIN HYDROCHLORIDE
     Indication: OVARIAN CANCER
     Dosage: (FIRST 3 CYCLES; CAELYX+5%GLUCOSE;)
     Route: 065
  10. GLUCOSE [Suspect]
     Active Substance: DEXTROSE
     Dosage: FIRST 3 CYCLES; CAELYX + 5% GLUCOSE
     Route: 065
  11. GLUCOSE [Suspect]
     Active Substance: DEXTROSE
     Indication: MEDICATION DILUTION
     Dosage: 4TH CYCLE; CARBOPLATIN 450 MG + 5% GLUCOSE 500 ML OVER 1 HOUR
     Route: 065
     Dates: start: 20210219
  12. GLUCOSE [Suspect]
     Active Substance: DEXTROSE
     Dosage: 250 ML, 4TH CYCLE; CAELYX 50 MG + 5% GLUCOSE 250 ML OVER 1 HOUR
     Route: 065
     Dates: start: 20210219
  13. CAELYX [Suspect]
     Active Substance: DOXORUBICIN HYDROCHLORIDE
     Dosage: UNK (4TH CYCLE)
     Route: 065
     Dates: start: 20210215
  14. CAELYX [Suspect]
     Active Substance: DOXORUBICIN HYDROCHLORIDE
     Dosage: UNK (50MG+5% GLUCOSE 250 ML OVER1 HOUR)
     Route: 042
     Dates: start: 20210219, end: 20210219
  15. CAELYX [Suspect]
     Active Substance: DOXORUBICIN HYDROCHLORIDE
     Dosage: UNK (4TH CYCLE, CAELYX 50MG+5% GLUCOSE 250 ML OVER1 HOUR)
     Route: 065
     Dates: start: 20210219
  16. DEXAMETHASONE. [Suspect]
     Active Substance: DEXAMETHASONE
     Indication: VOMITING
     Dosage: UNK, BID
     Route: 065
  17. ONDANSETRON [Suspect]
     Active Substance: ONDANSETRON
     Indication: NAUSEA
     Dosage: 8 MG, BID
     Route: 048
     Dates: start: 20210220, end: 20210221
  18. DOXIL [Suspect]
     Active Substance: DOXORUBICIN HYDROCHLORIDE
     Dosage: 50 MG, 4TH CYCLE; CAELYX 50 MG + 5% GLUCOSE 250 ML OVER 1 HOUR
     Route: 065
     Dates: start: 20210219
  19. DEXAMETHASONE. [Suspect]
     Active Substance: DEXAMETHASONE
     Indication: NAUSEA
     Dosage: 4 MG, BID
     Route: 048
     Dates: start: 20210220, end: 20210221
  20. PARACETAMOL [Concomitant]
     Active Substance: ACETAMINOPHEN
     Indication: PAIN
     Dosage: QID (500 MG?1 G UPTO FOUR TIMES A DAY, AS REQUIRED; NOT KNOWN? LONG TERM)
     Route: 048

REACTIONS (8)
  - Mouth ulceration [Unknown]
  - Neutropenia [Recovered/Resolved]
  - Myelosuppression [Unknown]
  - Thrombocytopenia [Recovered/Resolved]
  - Leukopenia [Recovered/Resolved]
  - Pancytopenia [Recovering/Resolving]
  - Neutropenic sepsis [Recovering/Resolving]
  - Anaemia [Recovered/Resolved]

NARRATIVE: CASE EVENT DATE: 202103
